FAERS Safety Report 16661034 (Version 1)
Quarter: 2019Q3

REPORT INFORMATION
  Report Type: Report from Study
  Country: None (occurrence: US)
  Receive Date: 20190802
  Receipt Date: 20190802
  Transmission Date: 20191004
  Serious: Yes (Other)
  Sender: FDA-Public Use
  Company Number: US-ABBVIE-19K-163-2872120-00

PATIENT
  Sex: Male

DRUGS (3)
  1. DEPAKOTE [Suspect]
     Active Substance: DIVALPROEX SODIUM
     Indication: SEIZURE PROPHYLAXIS
     Route: 048
  2. LEVETIRACETAM. [Concomitant]
     Active Substance: LEVETIRACETAM
     Indication: SEIZURE PROPHYLAXIS
  3. VIMPAT [Concomitant]
     Active Substance: LACOSAMIDE
     Indication: SEIZURE PROPHYLAXIS

REACTIONS (3)
  - Focal dyscognitive seizures [Unknown]
  - Fall [Unknown]
  - Altered state of consciousness [Unknown]
